FAERS Safety Report 20458791 (Version 2)
Quarter: 2022Q1

REPORT INFORMATION
  Report Type: Spontaneous
  Country: US (occurrence: US)
  Receive Date: 20220211
  Receipt Date: 20220316
  Transmission Date: 20220424
  Serious: No
  Sender: FDA-Public Use
  Company Number: US-JNJFOC-20220201601

PATIENT
  Age: 9 Decade
  Sex: Male

DRUGS (2)
  1. MENS ROGAINE EXTRA STRENGTH [Suspect]
     Active Substance: MINOXIDIL
     Indication: Alopecia
     Dosage: DOSE: AS DIRECTED/ 2X A DAY TO THE MEASUREMENT LINE
     Route: 061
     Dates: start: 2021, end: 20220131
  2. FINASTERIDE [Concomitant]
     Active Substance: FINASTERIDE
     Indication: Product used for unknown indication
     Route: 065

REACTIONS (5)
  - Heart rate increased [Recovering/Resolving]
  - Application site pruritus [Recovering/Resolving]
  - Application site dryness [Unknown]
  - Application site inflammation [Unknown]
  - Product packaging difficult to open [Unknown]

NARRATIVE: CASE EVENT DATE: 20210101
